FAERS Safety Report 6619193-0 (Version None)
Quarter: 2010Q1

REPORT INFORMATION
  Report Type: 
  Country: None (occurrence: None)
  Receive Date: 20100308
  Receipt Date: 20090605
  Transmission Date: 20100710
  Serious: Yes (Other)
  Sender: FDA-Public Use
  Company Number: US-ALLERGAN-0907914US

PATIENT
  Age: 67 Year
  Sex: Female

DRUGS (5)
  1. BOTOX [Suspect]
     Indication: BLEPHAROSPASM
     Dosage: 180 UNITS, SINGLE
     Route: 030
     Dates: start: 20090202, end: 20090202
  2. BOTOX [Suspect]
     Indication: HEAD TITUBATION
  3. BOTOX [Suspect]
     Indication: TORTICOLLIS
  4. FLU SHOT [Concomitant]
  5. SHINGLE SHOT [Concomitant]

REACTIONS (2)
  - MUSCULAR WEAKNESS [None]
  - THERAPEUTIC RESPONSE DECREASED [None]
